FAERS Safety Report 4319327-7 (Version None)
Quarter: 2004Q1

REPORT INFORMATION
  Report Type: 
  Country: None (occurrence: None)
  Receive Date: 20040319
  Receipt Date: 20031120
  Transmission Date: 20041129
  Serious: Yes (Life-Threatening, Hospitalization)
  Sender: FDA-Public Use
  Company Number: PHBS2003JP12914

PATIENT
  Age: 66 Year
  Sex: Male

DRUGS (1)
  1. STARSIS #AJ [Suspect]
     Indication: DIABETES MELLITUS
     Dosage: 270 MG/DAY
     Route: 048
     Dates: start: 20030808, end: 20031029

REACTIONS (4)
  - AGRANULOCYTOSIS [None]
  - LEUKOPENIA [None]
  - NEUTROPENIA [None]
  - OSTEOARTHRITIS [None]
